FAERS Safety Report 8971691 (Version 1)
Quarter: 2012Q4

REPORT INFORMATION
  Report Type: 
  Country: JP (occurrence: JP)
  Receive Date: 20121217
  Receipt Date: 20121217
  Transmission Date: 20130627
  Serious: Yes (Other)
  Sender: FDA-Public Use
  Company Number: JP-JNJFOC-20121205768

PATIENT

DRUGS (4)
  1. DUROTEP MT [Suspect]
     Indication: CANCER PAIN
     Route: 062
  2. DUROTEP MT [Suspect]
     Indication: CANCER PAIN
     Route: 062
  3. OXINORM [Suspect]
     Indication: CANCER PAIN
     Route: 048
  4. LYRICA [Concomitant]
     Indication: CANCER PAIN
     Route: 048

REACTIONS (2)
  - Loss of consciousness [Recovered/Resolved]
  - Pain [Unknown]
